FAERS Safety Report 6874966-4 (Version None)
Quarter: 2010Q2

REPORT INFORMATION
  Report Type: 
  Country: None (occurrence: None)
  Receive Date: 20100616
  Receipt Date: 20081103
  Transmission Date: 20101027
  Serious: Yes (Other)
  Sender: FDA-Public Use
  Company Number: 1000001361

PATIENT
  Age: 82 Year
  Sex: Male

DRUGS (9)
  1. NAMENDA [Suspect]
     Indication: AMNESIA
     Dosage: 5 MG (5 MG,1 IN 1 D),ORAL
     Route: 048
     Dates: start: 20081001, end: 20081004
  2. ROSUVASTATIN [Concomitant]
  3. ENALAPRIL [Concomitant]
  4. EZETIMIBE [Concomitant]
  5. GLIPIZIDE [Concomitant]
  6. LANOXIN [Concomitant]
  7. PLAVIX [Concomitant]
  8. PROPAFENONE [Concomitant]
  9. IRON [Concomitant]

REACTIONS (3)
  - CONFUSIONAL STATE [None]
  - DEPRESSION [None]
  - SUICIDAL IDEATION [None]
